FAERS Safety Report 6499105-3 (Version None)
Quarter: 2009Q4

REPORT INFORMATION
  Report Type: 
  Country: None (occurrence: None)
  Receive Date: 20091215
  Receipt Date: 20091203
  Transmission Date: 20100525
  Serious: Yes (Other)
  Sender: FDA-Public Use
  Company Number: JP-PFIZER INC-2009300486

PATIENT
  Age: 9 Year
  Sex: Male

DRUGS (3)
  1. IDAMYCIN [Suspect]
     Indication: ACUTE MYELOID LEUKAEMIA
     Dosage: INJ
     Route: 042
     Dates: start: 20081030
  2. CYLOCIDE [Suspect]
     Indication: ACUTE MYELOID LEUKAEMIA
     Dosage: INJ
     Route: 042
  3. FLUDARABINE [Suspect]
     Indication: ACUTE MYELOID LEUKAEMIA

REACTIONS (1)
  - FEBRILE NEUTROPENIA [None]
